FAERS Safety Report 5158067-1 (Version None)
Quarter: 2006Q4

REPORT INFORMATION
  Report Type: 
  Country: None (occurrence: None)
  Receive Date: 20061109
  Receipt Date: 20061103
  Transmission Date: 20070319
  Serious: Yes (Life-Threatening)
  Sender: FDA-Public Use
  Company Number: 200610815

PATIENT
  Age: 7 Year
  Sex: Male
  Weight: 29 kg

DRUGS (2)
  1. SANDOGLOBULIN [Suspect]
     Indication: HAEMORRHAGE
     Dosage: 60 ML DAILY, IV
     Route: 042
     Dates: start: 20061004, end: 20061004
  2. SANDOGLOBULIN [Suspect]
     Indication: THROMBOCYTOPENIC PURPURA
     Dosage: 60 ML DAILY, IV
     Route: 042
     Dates: start: 20061004, end: 20061004

REACTIONS (2)
  - AGITATION [None]
  - SHOCK [None]
